FAERS Safety Report 23089903 (Version 1)
Quarter: 2023Q4

REPORT INFORMATION
  Report Type: Spontaneous
  Country: CA (occurrence: CA)
  Receive Date: 20231020
  Receipt Date: 20231020
  Transmission Date: 20240110
  Serious: Yes (Other)
  Sender: FDA-Public Use
  Company Number: CA-009507513-2310CAN008504

PATIENT
  Age: 13 Year
  Sex: Female

DRUGS (5)
  1. TEMODAL [Suspect]
     Active Substance: TEMOZOLOMIDE
     Indication: Desmoplastic small round cell tumour
     Route: 065
  2. IRINOTECAN [Suspect]
     Active Substance: IRINOTECAN
     Indication: Desmoplastic small round cell tumour
     Route: 065
  3. PAZOPANIB [Suspect]
     Active Substance: PAZOPANIB
     Indication: Desmoplastic small round cell tumour
     Route: 065
  4. VINCRISTINE [Suspect]
     Active Substance: VINCRISTINE
     Indication: Desmoplastic small round cell tumour
     Route: 065
  5. DOXORUBICIN [Concomitant]
     Active Substance: DOXORUBICIN
     Indication: Cardiotoxicity
     Dosage: 400 MILLIGRAM/SQ. METER
     Route: 065

REACTIONS (2)
  - Desmoplastic small round cell tumour [Unknown]
  - Malignant neoplasm progression [Unknown]
